FAERS Safety Report 7532927-6 (Version None)
Quarter: 2011Q2

REPORT INFORMATION
  Report Type: 
  Country: None (occurrence: None)
  Receive Date: 20110601
  Receipt Date: 20110523
  Transmission Date: 20111010
  Serious: Yes (Other)
  Sender: FDA-Public Use
  Company Number: 2010SP066248

PATIENT
  Age: 74 Year
  Sex: Female

DRUGS (2)
  1. LEVOTHYROXINE SODIUM [Concomitant]
  2. ASMANEX TWISTHALER [Suspect]
     Indication: ASTHMA
     Dosage: 1 DF; QPM
     Dates: end: 20101201

REACTIONS (4)
  - ORAL PAIN [None]
  - DYSGEUSIA [None]
  - PRODUCT QUALITY ISSUE [None]
  - OROPHARYNGEAL PAIN [None]
